FAERS Safety Report 19896016 (Version 1)
Quarter: 2021Q3

REPORT INFORMATION
  Report Type: Report from Study
  Country: IT (occurrence: IT)
  Receive Date: 20210929
  Receipt Date: 20210929
  Transmission Date: 20211014
  Serious: Yes (Hospitalization, Other)
  Sender: FDA-Public Use
  Company Number: IT-GLAXOSMITHKLINE-IT2021EME190161

PATIENT
  Age: 79 Year
  Sex: Female
  Weight: 47 kg

DRUGS (2)
  1. DELTACORTENE (PREDNISONE) [Suspect]
     Active Substance: PREDNISONE
     Indication: IMMUNE THROMBOCYTOPENIA
     Dosage: 25 MG, BID
     Route: 048
     Dates: start: 20210802, end: 20210901
  2. NIRAPARIB [Suspect]
     Active Substance: NIRAPARIB
     Indication: OVARIAN CANCER
     Dosage: 100 MG, QD
     Route: 048
     Dates: start: 20210708, end: 20210901

REACTIONS (5)
  - Psychotic disorder [Recovering/Resolving]
  - Confusional state [Recovering/Resolving]
  - Hallucination [Recovering/Resolving]
  - Persecutory delusion [Recovering/Resolving]
  - Mania [Recovering/Resolving]

NARRATIVE: CASE EVENT DATE: 20210901
